FAERS Safety Report 5619999-0 (Version None)
Quarter: 2008Q1

REPORT INFORMATION
  Report Type: 
  Country: None (occurrence: None)
  Receive Date: 20080208
  Receipt Date: 20080129
  Transmission Date: 20080703
  Serious: Yes (Other)
  Sender: FDA-Public Use
  Company Number: US-ROCHE-544259

PATIENT
  Age: 44 Year
  Sex: Female

DRUGS (4)
  1. PEG-INTERFERON A-2A (RO 25-8310) [Suspect]
     Dosage: SUSPENDED TWO WEEKS AFTER START.
     Route: 065
     Dates: start: 20071101
  2. PEG-INTERFERON A-2A (RO 25-8310) [Suspect]
     Route: 065
     Dates: start: 20080113
  3. RIBAVIRIN [Suspect]
     Dosage: SUSPENDED TWO WEEKS AFTER START.
     Route: 065
     Dates: start: 20071101
  4. RIBAVIRIN [Suspect]
     Route: 065
     Dates: start: 20080113

REACTIONS (1)
  - NEOPLASM [None]
